FAERS Safety Report 9342757 (Version 2)
Quarter: 2013Q2

REPORT INFORMATION
  Report Type: Spontaneous
  Country: US (occurrence: None)
  Receive Date: 20130607
  Receipt Date: 20130607
  Transmission Date: 20140414
  Serious: Yes (Hospitalization, Other)
  Sender: FDA-Public Use
  Company Number: 7214396

PATIENT
  Sex: Male

DRUGS (1)
  1. LEVOTHYROXINE (LEVOTHYROXINE) [Suspect]
     Indication: HYPOTHYROIDISM
     Dosage: PRODUCT TAKEN BY MOTHER

REACTIONS (7)
  - Use of accessory respiratory muscles [None]
  - Encephalomalacia [None]
  - Periventricular leukomalacia [None]
  - Premature baby [None]
  - Cerebral haemorrhage [None]
  - Foetal exposure during pregnancy [None]
  - Cerebral palsy [None]
